FAERS Safety Report 9707302 (Version 1)
Quarter: 2013Q4

REPORT INFORMATION
  Report Type: Spontaneous
  Country: US (occurrence: US)
  Receive Date: 20131125
  Receipt Date: 20131125
  Transmission Date: 20140711
  Serious: No
  Sender: FDA-Public Use
  Company Number: US-GLAXOSMITHKLINE-A1000281A

PATIENT
  Age: 73 Year
  Sex: Female

DRUGS (8)
  1. FLOVENT [Suspect]
     Indication: ASTHMA
     Dosage: 1PUFF TWICE PER DAY
     Route: 055
  2. VENTOLIN HFA [Concomitant]
  3. METOPROLOL [Concomitant]
  4. AMLODIPINE [Concomitant]
  5. SIMVASTATIN [Concomitant]
  6. FUROSEMIDE [Concomitant]
  7. PAIN MEDICATION [Concomitant]
  8. INSULIN [Concomitant]

REACTIONS (4)
  - Dyspnoea [Not Recovered/Not Resolved]
  - Respiratory tract congestion [Not Recovered/Not Resolved]
  - Orthopnoea [Not Recovered/Not Resolved]
  - Product quality issue [Unknown]
